FAERS Safety Report 6440639-5 (Version None)
Quarter: 2009Q4

REPORT INFORMATION
  Report Type: 
  Country: None (occurrence: None)
  Receive Date: 20091116
  Receipt Date: 20091103
  Transmission Date: 20100525
  Serious: Yes (Hospitalization)
  Sender: FDA-Public Use
  Company Number: PHHO2009US13743

PATIENT
  Sex: Male
  Weight: 68.934 kg

DRUGS (4)
  1. RAD 666 RAD+TAB [Suspect]
     Indication: GLIOBLASTOMA MULTIFORME
     Dosage: 10 MG, QD
     Dates: start: 20090930, end: 20091014
  2. AVASTIN COMP-AVA+ [Suspect]
     Indication: GLIOBLASTOMA MULTIFORME
     Dosage: 753 MG, QD
     Dates: start: 20090720, end: 20090831
  3. AVASTIN COMP-AVA+ [Suspect]
     Dosage: 707 MG, QD
     Dates: start: 20090930, end: 20091014
  4. TEMOZOLOMIDE COMP-TEMO+ [Suspect]
     Indication: GLIOBLASTOMA MULTIFORME
     Dosage: 140 MG, QD
     Dates: start: 20090720, end: 20090831

REACTIONS (4)
  - CHEST PAIN [None]
  - LUNG INFILTRATION [None]
  - MUSCULOSKELETAL PAIN [None]
  - PULMONARY EMBOLISM [None]
